FAERS Safety Report 20838785 (Version 1)
Quarter: 2022Q2

REPORT INFORMATION
  Report Type: Spontaneous
  Country: CA (occurrence: CA)
  Receive Date: 20220517
  Receipt Date: 20220517
  Transmission Date: 20220721
  Serious: Yes (Hospitalization)
  Sender: FDA-Public Use
  Company Number: CA-UNITED THERAPEUTICS-UNT-2022-009866

PATIENT
  Age: 9 Year

DRUGS (3)
  1. REMODULIN [Suspect]
     Active Substance: TREPROSTINIL
     Indication: Pulmonary arterial hypertension
     Dosage: UNK UNK, CONTINUING
     Route: 058
     Dates: start: 20170814
  2. REMODULIN [Suspect]
     Active Substance: TREPROSTINIL
     Dosage: 0.132 ?G/KG APPROXIMATELY, CONTINUING
     Route: 058
  3. REMODULIN [Suspect]
     Active Substance: TREPROSTINIL
     Dosage: 0.132 ?G/KG, CONTINUING
     Route: 058

REACTIONS (9)
  - Respiratory syncytial virus infection [Unknown]
  - Cough [Recovered/Resolved]
  - Nasopharyngitis [Recovered/Resolved]
  - Infusion site discomfort [Unknown]
  - Echocardiogram abnormal [Unknown]
  - Weight decreased [Unknown]
  - Purulent discharge [Unknown]
  - Infusion site discharge [Unknown]
  - Infusion site erythema [Unknown]

NARRATIVE: CASE EVENT DATE: 20220401
